FAERS Safety Report 17100672 (Version 2)
Quarter: 2019Q4

REPORT INFORMATION
  Report Type: Spontaneous
  Country: US (occurrence: US)
  Receive Date: 20191202
  Receipt Date: 20191217
  Transmission Date: 20200122
  Serious: No
  Sender: FDA-Public Use
  Company Number: US-ELI_LILLY_AND_COMPANY-US201911007883

PATIENT
  Age: 56 Year
  Sex: Female

DRUGS (3)
  1. EMGALITY [Suspect]
     Active Substance: GALCANEZUMAB-GNLM
     Indication: MIGRAINE
     Dosage: 2 DOSAGE FORM, UNKNOWN
     Route: 065
     Dates: start: 20191108
  2. SUMATRIPTAN. [Interacting]
     Active Substance: SUMATRIPTAN
     Indication: PAIN PROPHYLAXIS
     Dosage: UNK, UNKNOWN
     Route: 065
  3. SUMATRIPTAN. [Interacting]
     Active Substance: SUMATRIPTAN
     Indication: HEADACHE

REACTIONS (4)
  - Headache [Not Recovered/Not Resolved]
  - Abdominal pain upper [Unknown]
  - Drug ineffective [Unknown]
  - Drug interaction [Unknown]

NARRATIVE: CASE EVENT DATE: 201911
